FAERS Safety Report 7764732-X (Version None)
Quarter: 2011Q3

REPORT INFORMATION
  Report Type: 
  Country: None (occurrence: None)
  Receive Date: 20110921
  Receipt Date: 20110919
  Transmission Date: 20111222
  Serious: Yes (Other)
  Sender: FDA-Public Use
  Company Number: US-PFIZER INC-2011222778

PATIENT
  Age: 7 Year
  Sex: Male

DRUGS (5)
  1. DEXMETHYLPHENIDATE [Concomitant]
  2. FLUOXETINE [Concomitant]
     Dosage: 60 MG/DAY
  3. SERTRALINE HYDROCHLORIDE [Suspect]
     Indication: ANXIETY
     Dosage: UNK
  4. RISPERIDONE [Suspect]
     Dosage: 2 MG/DAY
  5. TRAZODONE HCL [Suspect]
     Dosage: UNK

REACTIONS (5)
  - SEDATION [None]
  - AGGRESSION [None]
  - WEIGHT INCREASED [None]
  - DRUG INEFFECTIVE [None]
  - DRUG EFFECT DECREASED [None]
